FAERS Safety Report 5716961-4 (Version None)
Quarter: 2008Q2

REPORT INFORMATION
  Report Type: 
  Country: None (occurrence: None)
  Receive Date: 20080424
  Receipt Date: 20080422
  Transmission Date: 20081010
  Serious: Yes (Hospitalization)
  Sender: FDA-Public Use
  Company Number: DE-MERCK-0712DEU00072

PATIENT
  Age: 68 Year
  Sex: Female

DRUGS (14)
  1. FOSAMAX [Suspect]
     Indication: OSTEOPOROSIS
     Route: 048
  2. RAMIPRIL [Concomitant]
     Indication: HYPERTENSION
     Route: 065
  3. RAMIPRIL [Concomitant]
     Indication: TRANSIENT ISCHAEMIC ATTACK
     Route: 065
  4. HYDROCHLOROTHIAZIDE [Concomitant]
     Indication: HYPERTENSION
     Route: 065
  5. HYDROCHLOROTHIAZIDE [Concomitant]
     Indication: TRANSIENT ISCHAEMIC ATTACK
     Route: 065
  6. PANTOPRAZOLE [Concomitant]
     Indication: GASTROOESOPHAGEAL REFLUX DISEASE
     Route: 065
  7. PANTOPRAZOLE [Concomitant]
     Indication: OESOPHAGITIS
     Route: 065
  8. LEVOTHYROXINE SODIUM [Concomitant]
     Indication: HYPOTHYROIDISM
     Route: 065
  9. LEVOTHYROXINE SODIUM [Concomitant]
     Indication: GOITRE
     Route: 065
  10. POTASSIUM IODIDE [Concomitant]
     Indication: HYPOTHYROIDISM
     Route: 065
  11. POTASSIUM IODIDE [Concomitant]
     Indication: GOITRE
     Route: 065
  12. CALCIUM GLUCONATE [Concomitant]
     Indication: OSTEOPOROSIS
     Route: 065
  13. CALCIUM LACTOBIONATE [Concomitant]
     Indication: OSTEOPOROSIS
     Route: 065
  14. DULOXETINE HYDROCHLORIDE [Concomitant]
     Indication: PAIN
     Route: 065

REACTIONS (6)
  - ATELECTASIS [None]
  - BRONCHIAL INJURY [None]
  - DYSPHAGIA [None]
  - FOREIGN BODY ASPIRATION [None]
  - LARYNGEAL INJURY [None]
  - TRACHEAL INJURY [None]
